FAERS Safety Report 8265734 (Version 3)
Quarter: 2013Q4

REPORT INFORMATION
  Report Type: Spontaneous
  Country: US (occurrence: US)
  Receive Date: 20111128
  Receipt Date: 20131226
  Transmission Date: 20140711
  Serious: Yes (Hospitalization, Other)
  Sender: FDA-Public Use
  Company Number: US-ASTRAZENECA-2011SE71153

PATIENT
  Age: 62 Year
  Sex: Female
  Weight: 99.8 kg

DRUGS (4)
  1. CRESTOR [Suspect]
     Indication: BLOOD CHOLESTEROL ABNORMAL
     Route: 048
     Dates: start: 20131217
  2. CRESTOR [Suspect]
     Indication: BLOOD CHOLESTEROL INCREASED
     Route: 048
     Dates: start: 20131217
  3. 15 KINDS OF MEDICINES [Concomitant]
  4. ZETIA [Concomitant]

REACTIONS (5)
  - Aortic aneurysm [Unknown]
  - Cerebrovascular accident [Unknown]
  - Blood cholesterol abnormal [Unknown]
  - Circumstance or information capable of leading to medication error [Unknown]
  - Vertigo [Unknown]
